FAERS Safety Report 4900019-8 (Version None)
Quarter: 2006Q1

REPORT INFORMATION
  Report Type: 
  Country: None (occurrence: None)
  Receive Date: 20060201
  Receipt Date: 20060112
  Transmission Date: 20060701
  Serious: No
  Sender: FDA-Public Use
  Company Number: US200601002594

PATIENT
  Age: 41 Year
  Sex: Female

DRUGS (6)
  1. CYMBALTA [Suspect]
     Dosage: 60 MG; 30 MG
     Dates: end: 20060111
  2. CYMBALTA [Suspect]
     Dosage: 60 MG; 30 MG
     Dates: start: 20050927
  3. ZYPREXA [Concomitant]
  4. LIPITOR [Concomitant]
  5. MOTRIN [Concomitant]
  6. VICODIN [Concomitant]

REACTIONS (5)
  - ALANINE AMINOTRANSFERASE INCREASED [None]
  - ASPARTATE AMINOTRANSFERASE INCREASED [None]
  - HYPOAESTHESIA [None]
  - PHARMACEUTICAL PRODUCT COMPLAINT [None]
  - RED BLOOD CELL SEDIMENTATION RATE INCREASED [None]
